FAERS Safety Report 9958507 (Version 2)
Quarter: 2015Q1

REPORT INFORMATION
  Report Type: Spontaneous
  Country: SE (occurrence: SE)
  Receive Date: 20140305
  Receipt Date: 20150203
  Transmission Date: 20150721
  Serious: Yes (Other)
  Sender: FDA-Public Use
  Company Number: SE-AMGEN-SWESP2014013817

PATIENT
  Age: 81 Year
  Sex: Female

DRUGS (16)
  1. CANODERM [Concomitant]
     Dosage: 5 %, UNK
  2. SELEXID                            /00445301/ [Concomitant]
     Dosage: 200 MG, UNK
     Route: 048
     Dates: start: 20130619, end: 20130624
  3. ALVEDON [Concomitant]
     Active Substance: ACETAMINOPHEN
     Dosage: 665 MG, UNK
     Route: 048
  4. OMEPRAZOLE. [Concomitant]
     Active Substance: OMEPRAZOLE
  5. LOSARTAN [Concomitant]
     Active Substance: LOSARTAN
  6. XALCOM [Concomitant]
     Active Substance: LATANOPROST\TIMOLOL
  7. TRAMADOL [Concomitant]
     Active Substance: TRAMADOL
  8. KALCIPOS-D [Concomitant]
     Active Substance: CALCIUM CARBONATE\CHOLECALCIFEROL
  9. TROMBYL [Concomitant]
     Active Substance: ASPIRIN
     Dosage: 75 MG, UNK
     Route: 048
     Dates: start: 20130619
  10. LACTULOSE. [Concomitant]
     Active Substance: LACTULOSE
     Dosage: 670 MG/ML, UNK
  11. DETRUSITOL [Concomitant]
     Active Substance: TOLTERODINE TARTRATE
     Dosage: 4 MG, UNK
  12. PREDNISOLONE. [Concomitant]
     Active Substance: PREDNISOLONE
  13. NITROLINGUAL [Concomitant]
     Active Substance: NITROGLYCERIN
     Dosage: 0.4 MG, UNK
     Route: 060
  14. PROLIA [Suspect]
     Active Substance: DENOSUMAB
     Indication: OSTEOPOROSIS
     Dosage: 60 MG, Q6MO
     Route: 065
     Dates: start: 20130619, end: 20130619
  15. GABAPENTIN. [Concomitant]
     Active Substance: GABAPENTIN
  16. ARTELAC                            /00002701/ [Concomitant]

REACTIONS (3)
  - Bone pain [Unknown]
  - Pain [Unknown]
  - Sleep disorder [Unknown]

NARRATIVE: CASE EVENT DATE: 201306
